FAERS Safety Report 13770818 (Version 1)
Quarter: 2017Q3

REPORT INFORMATION
  Report Type: Report from Study
  Country: CR (occurrence: CR)
  Receive Date: 20170720
  Receipt Date: 20170720
  Transmission Date: 20171127
  Serious: Yes (Other)
  Sender: FDA-Public Use
  Company Number: PHHY2017CR019591

PATIENT
  Sex: Female
  Weight: 55 kg

DRUGS (5)
  1. INSULIN [Concomitant]
     Active Substance: INSULIN NOS
     Indication: BLOOD GLUCOSE ABNORMAL
     Dosage: 10 U, UNK
     Route: 058
  2. INSULIN [Concomitant]
     Active Substance: INSULIN NOS
     Indication: DIABETES MELLITUS
  3. SANDOSTATIN LAR DEPOT [Suspect]
     Active Substance: OCTREOTIDE ACETATE
     Indication: PITUITARY TUMOUR BENIGN
     Dosage: UNK
     Route: 065
     Dates: start: 201701
  4. ENALAPRIL [Concomitant]
     Active Substance: ENALAPRIL
     Indication: HYPERTENSION
     Route: 065
  5. ATENOLOL. [Concomitant]
     Active Substance: ATENOLOL
     Indication: HYPERTENSION
     Route: 065

REACTIONS (21)
  - Platelet count decreased [Unknown]
  - Anaemia [Unknown]
  - Blood disorder [Unknown]
  - Hypoglycaemia [Unknown]
  - Myalgia [Unknown]
  - Myopathy [Unknown]
  - Pain in extremity [Unknown]
  - Weight decreased [Unknown]
  - Gait disturbance [Unknown]
  - Bone marrow failure [Unknown]
  - Swelling [Unknown]
  - Iron deficiency [Unknown]
  - Blood glucose abnormal [Unknown]
  - Mobility decreased [Unknown]
  - Limb discomfort [Unknown]
  - Pallor [Unknown]
  - Asthenia [Unknown]
  - Skin ulcer [Recovering/Resolving]
  - Deformity [Unknown]
  - Hyperhidrosis [Unknown]
  - Rhabdomyolysis [Unknown]
